FAERS Safety Report 26011265 (Version 1)
Quarter: 2025Q4

REPORT INFORMATION
  Report Type: Spontaneous
  Country: AU (occurrence: AU)
  Receive Date: 20251107
  Receipt Date: 20251107
  Transmission Date: 20260117
  Serious: Yes (Hospitalization)
  Sender: NOVARTIS
  Company Number: AU-002147023-NVSC2025AU168641

PATIENT
  Age: 50 Year
  Sex: Female

DRUGS (3)
  1. OCTREOTIDE [Suspect]
     Active Substance: OCTREOTIDE
     Indication: Product used for unknown indication
     Dosage: UNK
     Route: 065
  2. OCTREOTIDE [Suspect]
     Active Substance: OCTREOTIDE
  3. OCTREOTIDE [Suspect]
     Active Substance: OCTREOTIDE

REACTIONS (3)
  - Abdominal distension [Recovered/Resolved]
  - Abdominal pain upper [Recovered/Resolved]
  - Nausea [Recovered/Resolved]

NARRATIVE: CASE EVENT DATE: 20250707
